FAERS Safety Report 9094928 (Version 1)
Quarter: 2013Q1

REPORT INFORMATION
  Report Type: Spontaneous
  Country: US (occurrence: US)
  Receive Date: 20130201
  Receipt Date: 20130201
  Transmission Date: 20140127
  Serious: Yes (Other)
  Sender: FDA-Public Use
  Company Number: US-ELI_LILLY_AND_COMPANY-US201301008417

PATIENT
  Sex: Female

DRUGS (1)
  1. EVISTA [Suspect]
     Indication: OSTEOPOROSIS
     Dosage: 60 MG, UNK
     Dates: end: 201208

REACTIONS (7)
  - Optic ischaemic neuropathy [Unknown]
  - Retinal oedema [Unknown]
  - Papilloedema [Unknown]
  - Retinal vascular occlusion [Unknown]
  - Intraocular pressure increased [Recovering/Resolving]
  - Eye disorder [Unknown]
  - Cataract [Unknown]
